APPROVED DRUG PRODUCT: DACARBAZINE
Active Ingredient: DACARBAZINE
Strength: 200MG/VIAL
Dosage Form/Route: INJECTABLE;INJECTION
Application: A075259 | Product #002 | TE Code: AP
Applicant: MEITHEAL PHARMACEUTICALS INC
Approved: Aug 27, 1998 | RLD: No | RS: No | Type: RX